FAERS Safety Report 13960027 (Version 1)
Quarter: 2017Q3

REPORT INFORMATION
  Report Type: Report from Study
  Country: CO (occurrence: CO)
  Receive Date: 20170912
  Receipt Date: 20170912
  Transmission Date: 20171128
  Serious: Yes (Death, Hospitalization)
  Sender: FDA-Public Use
  Company Number: CO-ASTELLAS-2017US036473

PATIENT
  Sex: Female
  Weight: 63 kg

DRUGS (2)
  1. TACROLIMUS. [Suspect]
     Active Substance: TACROLIMUS
     Indication: RENAL TRANSPLANT
  2. TACROLIMUS. [Suspect]
     Active Substance: TACROLIMUS
     Indication: LUNG TRANSPLANT
     Dosage: 4 MG, ONCE DAILY (2 MG AT THE MORNING AND 2 MG AT AFTERNOON)
     Route: 048
     Dates: start: 20150212

REACTIONS (2)
  - Drug dose omission [Unknown]
  - Transplantation complication [Fatal]
